FAERS Safety Report 8564535-2 (Version None)
Quarter: 2012Q3

REPORT INFORMATION
  Report Type: 
  Country: None (occurrence: None)
  Receive Date: 20120803
  Receipt Date: 20120801
  Transmission Date: 20120928
  Serious: Yes (Other)
  Sender: FDA-Public Use
  Company Number: DE-PFIZER INC-2012179767

PATIENT
  Age: 35 Year
  Sex: Male
  Weight: 115 kg

DRUGS (4)
  1. LEVOTHYROXINE SODIUM [Concomitant]
     Indication: HYPOPITUITARISM
     Dosage: 150 UG, 1X/DAY
     Route: 048
  2. GENOTROPIN [Suspect]
     Indication: HYPOPITUITARISM
     Dosage: 0.2 MG, 1X/DAY
     Route: 058
     Dates: start: 20050907
  3. NEBIDO [Concomitant]
     Indication: HYPOPITUITARISM
     Dosage: UNK
     Route: 030
     Dates: start: 20110202
  4. HYDROCORTISONE [Concomitant]
     Indication: HYPOPITUITARISM
     Dosage: 15 MG, 1X/DAY
     Dates: start: 19980501

REACTIONS (1)
  - MOOD ALTERED [None]
